FAERS Safety Report 15904007 (Version 1)
Quarter: 2019Q1

REPORT INFORMATION
  Report Type: Report from Study
  Country: None (occurrence: DE)
  Receive Date: 20190204
  Receipt Date: 20190204
  Transmission Date: 20190417
  Serious: Yes (Hospitalization)
  Sender: FDA-Public Use
  Company Number: DE-ABBVIE-19S-062-2646736-00

PATIENT
  Age: 61 Year
  Sex: Male

DRUGS (6)
  1. DUODOPA [Suspect]
     Active Substance: CARBIDOPA\LEVODOPA
     Indication: PARKINSON^S DISEASE
     Dosage: MD 6.0 ML; CRD 2.1 ML/HR; ED 0.5 ML
     Route: 050
     Dates: start: 20170530
  2. DUODOPA [Suspect]
     Active Substance: CARBIDOPA\LEVODOPA
     Dosage: MD 5.0 ML; CRD 1.9 ML/HR; ED 1.2 ML
     Route: 050
  3. MADOPAR RETARD [Concomitant]
     Indication: PRODUCT USED FOR UNKNOWN INDICATION
  4. DOMPERIDON [Concomitant]
     Active Substance: DOMPERIDONE
     Indication: PRODUCT USED FOR UNKNOWN INDICATION
  5. LEVOTHYROXINE. [Concomitant]
     Active Substance: LEVOTHYROXINE
     Indication: PRODUCT USED FOR UNKNOWN INDICATION
  6. OPICAPONE [Concomitant]
     Active Substance: OPICAPONE
     Indication: PRODUCT USED FOR UNKNOWN INDICATION

REACTIONS (2)
  - Hyperkinesia [Unknown]
  - Femoral neck fracture [Recovered/Resolved]

NARRATIVE: CASE EVENT DATE: 20180830
